FAERS Safety Report 9959696 (Version 1)
Quarter: 2014Q1

REPORT INFORMATION
  Report Type: Report from Study
  Country: US (occurrence: US)
  Receive Date: 20140305
  Receipt Date: 20140305
  Transmission Date: 20141002
  Serious: No
  Sender: FDA-Public Use
  Company Number: US-ABBVIE-13P-163-1107219-00

PATIENT
  Age: 74 Year
  Sex: Female

DRUGS (11)
  1. HUMIRA [Suspect]
     Indication: RHEUMATOID ARTHRITIS
     Dates: start: 20130522
  2. PREDNISONE [Concomitant]
     Indication: RHEUMATOID ARTHRITIS
     Dosage: 5 MG 1 A DAY
  3. HYDROXYCHLOR [Concomitant]
     Indication: RHEUMATOID ARTHRITIS
     Dosage: 200 MG 1 A DAILY
  4. HYDROCHLOROTHIAZIDE [Concomitant]
     Indication: BLOOD PRESSURE
     Dosage: 25 MG 1 A DAY
  5. TOPAMAX [Concomitant]
     Indication: MIGRAINE
     Dosage: 50 MG 1 A DAY
  6. TOPAMAX [Concomitant]
     Indication: INSOMNIA
  7. ALPRAZOLAM [Concomitant]
     Indication: NERVOUSNESS
     Dosage: .5 MG 1/2 TABLET IN THE MORNING AND 1 TABLET AT BEDTIME
  8. ALPRAZOLAM [Concomitant]
     Dosage: 1 TABLET AT BEDTIME
  9. FOLIC ACID [Concomitant]
     Indication: VITAMIN SUPPLEMENTATION
     Dosage: 1 MG 1 A DAY
  10. CHOR KON [Concomitant]
     Indication: MINERAL SUPPLEMENTATION
     Dosage: 10 MEQ 1 1 DAY
  11. PRISTIQ [Concomitant]
     Indication: DEPRESSION
     Dosage: 100 MG 1 A DAY

REACTIONS (1)
  - Pain in extremity [Recovered/Resolved]
